FAERS Safety Report 8385904-X (Version None)
Quarter: 2012Q2

REPORT INFORMATION
  Report Type: 
  Country: None (occurrence: None)
  Receive Date: 20120525
  Receipt Date: 20120517
  Transmission Date: 20120825
  Serious: Yes (Death, Hospitalization)
  Sender: FDA-Public Use
  Company Number: GB-MPIJNJ-2012-01700

PATIENT

DRUGS (12)
  1. ACYCLOVIR [Concomitant]
     Dosage: 200 MG, BID
  2. ENOXAPARIN [Concomitant]
     Dosage: 20 MG, UNK
     Route: 058
  3. FLUCONAZOLE [Concomitant]
     Dosage: 50 MG, QD
  4. MOVICOL                            /01053601/ [Concomitant]
  5. DEXAMETHASONE [Suspect]
     Indication: MULTIPLE MYELOMA
  6. LANSOPRAZOLE [Concomitant]
     Dosage: 30 MG, QD
  7. FOLIC ACID [Concomitant]
     Dosage: 5 MG, UNK
  8. DOXYCYCLINE [Concomitant]
     Dosage: 100 MG, BID
  9. VELCADE [Suspect]
     Indication: MULTIPLE MYELOMA
     Dosage: UNK
     Dates: start: 20090723, end: 20091026
  10. CALCIUM CARBONATE [Concomitant]
  11. COTRIMAXAZOLE [Concomitant]
     Dosage: 480 MG, QD
  12. ALFACALCIDOL [Concomitant]
     Dosage: 1 UG, QD

REACTIONS (2)
  - DIARRHOEA [None]
  - DEATH [None]
